FAERS Safety Report 25405587 (Version 1)
Quarter: 2025Q2

REPORT INFORMATION
  Report Type: Report from Study
  Country: US (occurrence: US)
  Receive Date: 20250606
  Receipt Date: 20250606
  Transmission Date: 20250716
  Serious: Yes (Other)
  Sender: ABBVIE
  Company Number: US-ABBVIE-6288040

PATIENT
  Sex: Male

DRUGS (1)
  1. SKYRIZI [Suspect]
     Active Substance: RISANKIZUMAB-RZAA
     Indication: Product used for unknown indication
     Route: 058
     Dates: start: 20240429

REACTIONS (8)
  - Bile duct stenosis [Unknown]
  - Pruritus [Not Recovered/Not Resolved]
  - Dyspepsia [Unknown]
  - Liver disorder [Unknown]
  - Faecaloma [Unknown]
  - Abdominal distension [Unknown]
  - Pain [Unknown]
  - Muscle spasms [Unknown]
